FAERS Safety Report 16754155 (Version 2)
Quarter: 2019Q3

REPORT INFORMATION
  Report Type: Spontaneous
  Country: US (occurrence: US)
  Receive Date: 20190829
  Receipt Date: 20190916
  Transmission Date: 20191005
  Serious: Yes (Other)
  Sender: FDA-Public Use
  Company Number: US-TORRENT-00009129

PATIENT
  Age: 92 Year
  Sex: Female
  Weight: 56 kg

DRUGS (4)
  1. OLMESARTAN [Concomitant]
     Active Substance: OLMESARTAN
     Indication: HYPERTENSION
     Dosage: ONCE A DAY
  2. OLMESARTAN MEDOXOMIL. [Suspect]
     Active Substance: OLMESARTAN MEDOXOMIL
     Indication: HYPERTENSION
     Dosage: 10 OR 8 YEARS ONCE A DAY
  3. OLMESARTAN [Suspect]
     Active Substance: OLMESARTAN
     Indication: PRODUCT USED FOR UNKNOWN INDICATION
     Dosage: 7 OR 8 YEARS AGO
  4. OLMESARTAN [Concomitant]
     Active Substance: OLMESARTAN
     Indication: HYPERTENSION
     Dosage: ONCE A DAY

REACTIONS (11)
  - Bronchitis [Recovered/Resolved]
  - Peripheral swelling [Unknown]
  - Influenza like illness [Recovered/Resolved]
  - Scratch [Unknown]
  - Nasopharyngitis [Recovered/Resolved]
  - Rash [Not Recovered/Not Resolved]
  - Bacterial infection [Recovered/Resolved]
  - Oesophageal obstruction [Unknown]
  - Pruritus [Not Recovered/Not Resolved]
  - Dysphagia [Unknown]
  - Malaise [Unknown]

NARRATIVE: CASE EVENT DATE: 2010
